FAERS Safety Report 9961333 (Version 1)
Quarter: 2014Q1

REPORT INFORMATION
  Report Type: Spontaneous
  Country: BR (occurrence: BR)
  Receive Date: 20140305
  Receipt Date: 20140305
  Transmission Date: 20141002
  Serious: Yes (Other)
  Sender: FDA-Public Use
  Company Number: BR-JNJFOC-20140211342

PATIENT
  Age: 65 Year
  Sex: Female

DRUGS (4)
  1. TYLEX [Suspect]
     Indication: PAIN IN EXTREMITY
     Route: 065
     Dates: start: 20140214
  2. ENALAPRIL MALEATE [Concomitant]
     Indication: HYPERTENSION
     Route: 065
  3. SIMVASTATIN [Concomitant]
     Indication: BLOOD CHOLESTEROL
     Route: 065
  4. INSULIN [Concomitant]
     Indication: DIABETES MELLITUS
     Route: 065

REACTIONS (1)
  - Hypotension [Not Recovered/Not Resolved]
